FAERS Safety Report 8208009-7 (Version None)
Quarter: 2012Q1

REPORT INFORMATION
  Report Type: 
  Country: None (occurrence: None)
  Receive Date: 20120314
  Receipt Date: 20120301
  Transmission Date: 20120608
  Serious: Yes (Other)
  Sender: FDA-Public Use
  Company Number: DE-SANOFI-AVENTIS-2012SA016903

PATIENT
  Sex: Male

DRUGS (8)
  1. DOCETAXEL [Suspect]
     Route: 051
     Dates: start: 20070423, end: 20070423
  2. DOCETAXEL [Suspect]
     Dosage: SEQUENCE 1, CYCLE 3-4CYCLE 3, DOSE: 76.06 MG/M2CYCLE 4, DOSE: 74.40 MG/M2
     Route: 051
     Dates: start: 20060322, end: 20060412
  3. DOCETAXEL [Suspect]
     Indication: NEOPLASM PROSTATE
     Route: 051
     Dates: start: 20060208, end: 20060208
  4. DOCETAXEL [Suspect]
     Route: 051
     Dates: start: 20061013, end: 20061013
  5. DOCETAXEL [Suspect]
     Route: 051
     Dates: start: 20060922, end: 20060922
  6. DOCETAXEL [Suspect]
     Route: 051
     Dates: start: 20060301, end: 20060301
  7. DOCETAXEL [Suspect]
     Route: 051
     Dates: start: 20070515, end: 20070515
  8. DOCETAXEL [Suspect]
     Route: 051
     Dates: start: 20061103, end: 20061124

REACTIONS (1)
  - HYPERGLYCAEMIA [None]
